FAERS Safety Report 10721490 (Version 4)
Quarter: 2015Q1

REPORT INFORMATION
  Report Type: Spontaneous
  Country: US (occurrence: US)
  Receive Date: 20150119
  Receipt Date: 20150326
  Transmission Date: 20150721
  Serious: Yes (Other)
  Sender: FDA-Public Use
  Company Number: US-BAYER-2015-003635

PATIENT
  Age: 22 Year
  Sex: Female
  Weight: 76.64 kg

DRUGS (2)
  1. AZITHROMYCIN [Concomitant]
     Active Substance: AZITHROMYCIN ANHYDROUS
     Dosage: 250 MG, ONCE
     Dates: start: 20140917
  2. MIRENA [Suspect]
     Active Substance: LEVONORGESTREL
     Indication: CONTRACEPTION
     Dosage: 20 MCG/24HR, CONT
     Route: 015
     Dates: start: 20140917

REACTIONS (6)
  - Vaginal discharge [None]
  - Dyspareunia [None]
  - Dysmenorrhoea [None]
  - Sinus disorder [None]
  - Post procedural haemorrhage [Recovered/Resolved]
  - Vaginal haemorrhage [None]

NARRATIVE: CASE EVENT DATE: 201409
